FAERS Safety Report 10530366 (Version 1)
Quarter: 2014Q4

REPORT INFORMATION
  Report Type: Spontaneous
  Country: GB (occurrence: None)
  Receive Date: 20141017
  Receipt Date: 20141017
  Transmission Date: 20150528
  Serious: Yes (Other)
  Sender: FDA-Public Use
  Company Number: COL_18233_2014

PATIENT
  Age: 14 Year
  Sex: Female

DRUGS (1)
  1. COLGATE DURAPHAT [Suspect]
     Active Substance: SODIUM FLUORIDE
     Indication: DENTAL CARIES
     Route: 048
     Dates: start: 20140912, end: 20140920

REACTIONS (3)
  - Oral discomfort [None]
  - Lip swelling [None]
  - Anaphylactic reaction [None]
